FAERS Safety Report 10335157 (Version 1)
Quarter: 2014Q3

REPORT INFORMATION
  Report Type: Spontaneous
  Country: US (occurrence: None)
  Receive Date: 20140722
  Receipt Date: 20140722
  Transmission Date: 20150326
  Serious: Yes (Life-Threatening, Hospitalization, Other)
  Sender: FDA-Public Use
  Company Number: None

PATIENT
  Age: 40 Year
  Sex: Female
  Weight: 79.38 kg

DRUGS (1)
  1. TECFIDERA [Suspect]
     Active Substance: DIMETHYL FUMARATE
     Indication: MULTIPLE SCLEROSIS
     Dosage: 2 PILLS A DAY TWICE DAILY TAKEN BY MOUTH
     Route: 048
     Dates: start: 20140626, end: 20140705

REACTIONS (5)
  - Electrocardiogram QT prolonged [None]
  - Cough [None]
  - Pruritus [None]
  - Respiratory tract irritation [None]
  - Dyspnoea [None]

NARRATIVE: CASE EVENT DATE: 20140626
